FAERS Safety Report 18200740 (Version 2)
Quarter: 2020Q3

REPORT INFORMATION
  Report Type: Spontaneous
  Country: US (occurrence: US)
  Receive Date: 20200826
  Receipt Date: 20200909
  Transmission Date: 20201103
  Serious: No
  Sender: FDA-Public Use
  Company Number: US-009507513-2008USA012525

PATIENT
  Age: 55 Year
  Sex: Female

DRUGS (4)
  1. LENVATINIB MESYLATE [Suspect]
     Active Substance: LENVATINIB MESYLATE
     Indication: ENDOMETRIAL CANCER
     Dosage: 14 MILLIGRAM, QD
     Route: 048
     Dates: end: 20200705
  2. LENVATINIB MESYLATE [Suspect]
     Active Substance: LENVATINIB MESYLATE
     Dosage: 18 MILLIGRAM, QD
     Route: 048
     Dates: start: 20200705
  3. VITAMINS (UNSPECIFIED) [Concomitant]
     Active Substance: VITAMINS
     Indication: ENDOMETRIAL CANCER
     Dosage: UNK, QD
     Route: 048
  4. KEYTRUDA [Suspect]
     Active Substance: PEMBROLIZUMAB
     Indication: ENDOMETRIAL CANCER
     Dosage: UNK, Q3W
     Route: 042
     Dates: start: 20200617

REACTIONS (11)
  - Blood thyroid stimulating hormone abnormal [Not Recovered/Not Resolved]
  - Genitourinary symptom [Unknown]
  - Sinus disorder [Unknown]
  - Headache [Not Recovered/Not Resolved]
  - Oral discomfort [Not Recovered/Not Resolved]
  - Fatigue [Not Recovered/Not Resolved]
  - Hypersensitivity [Unknown]
  - Blood pressure increased [Recovering/Resolving]
  - Proteinuria [Unknown]
  - Skin burning sensation [Not Recovered/Not Resolved]
  - Feeling abnormal [Unknown]

NARRATIVE: CASE EVENT DATE: 2020
